FAERS Safety Report 18222504 (Version 1)
Quarter: 2020Q3

REPORT INFORMATION
  Report Type: Spontaneous
  Country: US (occurrence: US)
  Receive Date: 20200831
  Receipt Date: 20200831
  Transmission Date: 20201103
  Serious: Yes (Hospitalization)
  Sender: FDA-Public Use
  Company Number: None

PATIENT
  Age: 67 Year
  Sex: Male
  Weight: 88 kg

DRUGS (1)
  1. NITROGLYCERIN (NITROGLYCERIN) (ABLE) 0.4MG AB, SUBLINGUAL) [Suspect]
     Active Substance: NITROGLYCERIN
     Route: 060
     Dates: start: 20200617, end: 20200617

REACTIONS (9)
  - Vomiting [None]
  - Altered state of consciousness [None]
  - Dizziness [None]
  - Cardiac arrest [None]
  - Sinus arrest [None]
  - Feeling abnormal [None]
  - Bradycardia [None]
  - Nausea [None]
  - Syncope [None]

NARRATIVE: CASE EVENT DATE: 20200617
